FAERS Safety Report 16835703 (Version 1)
Quarter: 2019Q3

REPORT INFORMATION
  Report Type: Spontaneous
  Country: CA (occurrence: CA)
  Receive Date: 20190920
  Receipt Date: 20190920
  Transmission Date: 20191005
  Serious: Yes (Other)
  Sender: FDA-Public Use
  Company Number: CA-TEVA-2019-CA-1110991

PATIENT
  Age: 74 Year
  Sex: Female

DRUGS (10)
  1. OMALIZUMAB. [Suspect]
     Active Substance: OMALIZUMAB
     Route: 058
  2. ADVAIR HFA [Concomitant]
     Active Substance: FLUTICASONE PROPIONATE\SALMETEROL XINAFOATE
     Indication: PRODUCT USED FOR UNKNOWN INDICATION
     Dosage: 4 DOSAGE FORMS DAILY;
     Route: 065
  3. DILTIAZEM. [Concomitant]
     Active Substance: DILTIAZEM
     Indication: PRODUCT USED FOR UNKNOWN INDICATION
     Dosage: 180 MILLIGRAM DAILY;
     Route: 065
  4. ALVESCO [Concomitant]
     Active Substance: CICLESONIDE
     Indication: PRODUCT USED FOR UNKNOWN INDICATION
     Dosage: 4 DOSAGE FORMS DAILY;
     Route: 065
  5. VALSARTAN. [Suspect]
     Active Substance: VALSARTAN
     Indication: PRODUCT USED FOR UNKNOWN INDICATION
     Dosage: 80 MILLIGRAM DAILY;
     Route: 065
  6. OMALIZUMAB. [Suspect]
     Active Substance: OMALIZUMAB
     Indication: ASTHMA
     Route: 058
  7. SYNTHROID [Concomitant]
     Active Substance: LEVOTHYROXINE SODIUM
     Indication: PRODUCT USED FOR UNKNOWN INDICATION
     Route: 065
  8. DILTIAZEM. [Concomitant]
     Active Substance: DILTIAZEM
     Route: 065
  9. PULMICORT TURBUHALER [Concomitant]
     Active Substance: BUDESONIDE
     Indication: PRODUCT USED FOR UNKNOWN INDICATION
     Route: 065
  10. SINGULAIR [Concomitant]
     Active Substance: MONTELUKAST SODIUM
     Indication: PRODUCT USED FOR UNKNOWN INDICATION
     Route: 065

REACTIONS (29)
  - Eye disorder [Recovering/Resolving]
  - Fatigue [Recovering/Resolving]
  - Pruritus [Recovering/Resolving]
  - Skin abrasion [Recovering/Resolving]
  - Skin irritation [Recovering/Resolving]
  - Vascular pain [Recovering/Resolving]
  - Blood pressure diastolic decreased [Recovering/Resolving]
  - Lung disorder [Recovering/Resolving]
  - Asthenia [Recovering/Resolving]
  - Eye pain [Recovering/Resolving]
  - Influenza [Recovering/Resolving]
  - Malaise [Recovering/Resolving]
  - Skin sensitisation [Recovering/Resolving]
  - Ocular hyperaemia [Recovering/Resolving]
  - Pigmentation disorder [Recovering/Resolving]
  - Respiratory disorder [Recovering/Resolving]
  - Pain in extremity [Recovering/Resolving]
  - Skin haemorrhage [Recovering/Resolving]
  - Accident [Recovering/Resolving]
  - Blood pressure systolic increased [Recovering/Resolving]
  - Cough [Recovering/Resolving]
  - Haematoma [Recovering/Resolving]
  - Skin disorder [Recovering/Resolving]
  - Alopecia [Recovering/Resolving]
  - Pain of skin [Recovering/Resolving]
  - Skin atrophy [Recovering/Resolving]
  - Skin lesion [Recovering/Resolving]
  - Sputum discoloured [Recovering/Resolving]
  - Vein disorder [Recovering/Resolving]
